FAERS Safety Report 23097883 (Version 1)
Quarter: 2023Q4

REPORT INFORMATION
  Report Type: Spontaneous
  Country: US (occurrence: US)
  Receive Date: 20231023
  Receipt Date: 20231023
  Transmission Date: 20240110
  Serious: No
  Sender: FDA-Public Use
  Company Number: US-BAYER-2023A144313

PATIENT
  Age: 76 Year
  Sex: Male

DRUGS (2)
  1. MIRALAX [Suspect]
     Active Substance: POLYETHYLENE GLYCOL 3350
     Indication: Abdominal discomfort
     Dosage: 2 DF
     Route: 048
     Dates: start: 20230803, end: 20230810
  2. LACTULOSE [Concomitant]
     Active Substance: LACTULOSE

REACTIONS (1)
  - Drug intolerance [Not Recovered/Not Resolved]

NARRATIVE: CASE EVENT DATE: 20230823
